FAERS Safety Report 24740619 (Version 1)
Quarter: 2024Q4

REPORT INFORMATION
  Report Type: Spontaneous
  Country: US (occurrence: US)
  Receive Date: 20241217
  Receipt Date: 20241217
  Transmission Date: 20250115
  Serious: No
  Sender: ENDO
  Company Number: US-ENDO USA, INC.-2024-002425

PATIENT
  Sex: Male
  Weight: 122.45 kg

DRUGS (9)
  1. XIAFLEX [Suspect]
     Active Substance: COLLAGENASE CLOSTRIDIUM HISTOLYTICUM
     Indication: Peyronie^s disease
     Dosage: UNK UNKNOWN, UNKNOWN (CYCLE 4, INJECTION 8))
     Route: 051
     Dates: start: 20240517
  2. XIAFLEX [Suspect]
     Active Substance: COLLAGENASE CLOSTRIDIUM HISTOLYTICUM
     Dosage: UNK UNKNOWN, UNKNOWN (INJECTION 1)
     Route: 051
     Dates: start: 2023
  3. XIAFLEX [Suspect]
     Active Substance: COLLAGENASE CLOSTRIDIUM HISTOLYTICUM
     Dosage: UNK UNKNOWN, UNKNOWN (INJECTION 2)
     Route: 051
  4. XIAFLEX [Suspect]
     Active Substance: COLLAGENASE CLOSTRIDIUM HISTOLYTICUM
     Dosage: UNK UNKNOWN, UNKNOWN (INJECTION 3)
     Route: 051
  5. XIAFLEX [Suspect]
     Active Substance: COLLAGENASE CLOSTRIDIUM HISTOLYTICUM
     Dosage: UNK UNKNOWN, UNKNOWN (INJECTION 4)
     Route: 051
  6. XIAFLEX [Suspect]
     Active Substance: COLLAGENASE CLOSTRIDIUM HISTOLYTICUM
     Dosage: UNK UNKNOWN, UNKNOWN (INJECTION 5)
     Route: 051
  7. XIAFLEX [Suspect]
     Active Substance: COLLAGENASE CLOSTRIDIUM HISTOLYTICUM
     Dosage: UNK UNKNOWN, UNKNOWN (INJECTION 6)
     Route: 051
  8. XIAFLEX [Suspect]
     Active Substance: COLLAGENASE CLOSTRIDIUM HISTOLYTICUM
     Dosage: UNK UNKNOWN, UNKNOWN (INJECTION 7)
     Route: 051
     Dates: start: 2024
  9. BUSPIRONE [Concomitant]
     Active Substance: BUSPIRONE HYDROCHLORIDE
     Indication: Anxiety
     Dosage: UNK UNKNOWN, UNKNOWN
     Route: 065

REACTIONS (37)
  - Abdominal pain upper [Unknown]
  - Diarrhoea [Unknown]
  - Disorientation [Unknown]
  - Dyspnoea [Unknown]
  - Fatigue [Unknown]
  - Haematuria [Unknown]
  - Hyperhidrosis [Not Recovered/Not Resolved]
  - Irritability [Unknown]
  - Lung disorder [Unknown]
  - Musculoskeletal disorder [Unknown]
  - Peyronie^s disease [Not Recovered/Not Resolved]
  - Condition aggravated [Not Recovered/Not Resolved]
  - Nausea [Not Recovered/Not Resolved]
  - Pelvic pain [Not Recovered/Not Resolved]
  - Penile burning sensation [Not Recovered/Not Resolved]
  - Perineal pain [Unknown]
  - Penile necrosis [Unknown]
  - Penile size reduced [Not Recovered/Not Resolved]
  - Perineal swelling [Unknown]
  - Testicular pain [Unknown]
  - Testicular swelling [Unknown]
  - Treatment delayed [Unknown]
  - Panic reaction [Recovering/Resolving]
  - Penile infection [Unknown]
  - Penis injury [Recovered/Resolved]
  - Scar [Unknown]
  - Thinking abnormal [Recovering/Resolving]
  - Urinary incontinence [Recovering/Resolving]
  - Urethral fistula [Unknown]
  - Vomiting [Unknown]
  - Erectile dysfunction [Not Recovered/Not Resolved]
  - Penile pain [Unknown]
  - Penile swelling [Unknown]
  - Scrotal swelling [Unknown]
  - Inappropriate schedule of product administration [Unknown]
  - Wrong technique in product usage process [Unknown]
  - Off label use [Unknown]

NARRATIVE: CASE EVENT DATE: 20230101
